FAERS Safety Report 18414520 (Version 1)
Quarter: 2020Q4

REPORT INFORMATION
  Report Type: Spontaneous
  Country: US (occurrence: US)
  Receive Date: 20201021
  Receipt Date: 20201021
  Transmission Date: 20210114
  Serious: Yes (Hospitalization)
  Sender: FDA-Public Use
  Company Number: None

PATIENT
  Age: 38 Year
  Sex: Female
  Weight: 95 kg

DRUGS (2)
  1. NORTHERA [Concomitant]
     Active Substance: DROXIDOPA
     Dates: start: 20201013, end: 20201020
  2. NORTHERA [Suspect]
     Active Substance: DROXIDOPA
     Indication: POSTURAL ORTHOSTATIC TACHYCARDIA SYNDROME
     Dates: start: 20201013

REACTIONS (5)
  - Clonus [None]
  - Serotonin syndrome [None]
  - Hyperreflexia [None]
  - Neuroleptic malignant syndrome [None]
  - Muscle spasms [None]

NARRATIVE: CASE EVENT DATE: 20201020
